FAERS Safety Report 6815360-1 (Version None)
Quarter: 2010Q3

REPORT INFORMATION
  Report Type: 
  Country: None (occurrence: None)
  Receive Date: 20100702
  Receipt Date: 20100624
  Transmission Date: 20110219
  Serious: Yes (Other)
  Sender: FDA-Public Use
  Company Number: US-ELI_LILLY_AND_COMPANY-US201004008157

PATIENT
  Age: 59 Year
  Sex: Male

DRUGS (14)
  1. HUMALOG [Suspect]
     Indication: TYPE 2 DIABETES MELLITUS
     Dosage: 18 U, EACH MORNING
     Dates: start: 20031101
  2. HUMALOG [Suspect]
     Dosage: 18 U, OTHER
     Dates: start: 20031101
  3. HUMALOG [Suspect]
     Dosage: 20 U, EACH EVENING
     Dates: start: 20031101
  4. HUMALOG [Suspect]
     Dosage: 18 U, EACH MORNING
  5. HUMALOG [Suspect]
     Dosage: 18 U, OTHER
  6. HUMALOG [Suspect]
     Dosage: 20 U, EACH EVENING
  7. HUMALOG [Suspect]
     Dosage: 18 U, EACH MORNING
  8. HUMALOG [Suspect]
     Dosage: 18 U, OTHER
  9. HUMALOG [Suspect]
     Dosage: 20 U, EACH EVENING
  10. LYRICA [Concomitant]
  11. ASPIRIN [Concomitant]
  12. COREG [Concomitant]
     Dosage: 25 MG, 2/D
  13. LANTUS [Concomitant]
     Dosage: 16 U, EACH MORNING
  14. LANTUS [Concomitant]
     Dosage: 30 U, EACH EVENING

REACTIONS (15)
  - ASTHENIA [None]
  - BLINDNESS [None]
  - BLOOD GLUCOSE DECREASED [None]
  - DIABETIC NEUROPATHY [None]
  - DIPLOPIA [None]
  - DIZZINESS [None]
  - EYE HAEMORRHAGE [None]
  - FEAR [None]
  - HYPERHIDROSIS [None]
  - INCORRECT DOSE ADMINISTERED [None]
  - NERVOUSNESS [None]
  - PARANOIA [None]
  - TENDONITIS [None]
  - VISION BLURRED [None]
  - VISUAL ACUITY REDUCED [None]
